FAERS Safety Report 8202876-9 (Version None)
Quarter: 2012Q1

REPORT INFORMATION
  Report Type: 
  Country: None (occurrence: None)
  Receive Date: 20120312
  Receipt Date: 20120312
  Transmission Date: 20120608
  Serious: Yes (Hospitalization)
  Sender: FDA-Public Use
  Company Number: None

PATIENT
  Age: 40 Year
  Sex: Female
  Weight: 86.182 kg

DRUGS (1)
  1. LEVOCETIRIZINE DIHYDROCHLORIDE [Suspect]
     Indication: SEASONAL ALLERGY
     Dosage: 1 TABLET
     Route: 048
     Dates: start: 20120309, end: 20120311

REACTIONS (7)
  - RESTLESSNESS [None]
  - DYSPNOEA [None]
  - DIZZINESS [None]
  - SWOLLEN TONGUE [None]
  - PARAESTHESIA [None]
  - VIOLENCE-RELATED SYMPTOM [None]
  - THROAT TIGHTNESS [None]
